FAERS Safety Report 9736522 (Version 1)
Quarter: 2013Q4

REPORT INFORMATION
  Report Type: Spontaneous
  Country: US (occurrence: US)
  Receive Date: 20131206
  Receipt Date: 20131206
  Transmission Date: 20140711
  Serious: No
  Sender: FDA-Public Use
  Company Number: US-BIOGENIDEC-2013BI092755

PATIENT
  Age: 44 Year
  Sex: Female

DRUGS (1)
  1. TECFIDERA [Suspect]
     Indication: MULTIPLE SCLEROSIS
     Route: 048
     Dates: start: 20130916, end: 20131025

REACTIONS (7)
  - Tremor [Recovered/Resolved]
  - Skin disorder [Unknown]
  - Crying [Recovered/Resolved]
  - Rash [Unknown]
  - Flushing [Unknown]
  - Pruritus [Unknown]
  - Burning sensation [Unknown]
